FAERS Safety Report 5131546-9 (Version None)
Quarter: 2006Q4

REPORT INFORMATION
  Report Type: 
  Country: None (occurrence: None)
  Receive Date: 20061016
  Receipt Date: 20061003
  Transmission Date: 20070319
  Serious: Yes (Other)
  Sender: FDA-Public Use
  Company Number: 2006122422

PATIENT
  Sex: Female

DRUGS (2)
  1. PREDNISOLONE [Suspect]
  2. ACTOS [Suspect]

REACTIONS (1)
  - MACULAR OEDEMA [None]
